FAERS Safety Report 23283121 (Version 1)
Quarter: 2023Q4

REPORT INFORMATION
  Report Type: Spontaneous
  Country: FR (occurrence: FR)
  Receive Date: 20231211
  Receipt Date: 20231211
  Transmission Date: 20240110
  Serious: Yes (Hospitalization, Other)
  Sender: FDA-Public Use
  Company Number: FR-EMA-DD-20220131-bhushan_a-201154

PATIENT
  Age: 65 Year
  Sex: Male

DRUGS (16)
  1. MYCOPHENOLATE MOFETIL [Suspect]
     Active Substance: MYCOPHENOLATE MOFETIL
     Indication: Heart transplant rejection
     Dosage: 1000 MILLIGRAM, QD (500 MG, BID)
     Route: 065
     Dates: start: 2017
  2. MYCOPHENOLATE MOFETIL [Suspect]
     Active Substance: MYCOPHENOLATE MOFETIL
     Indication: Immunosuppressant drug therapy
  3. PREDNISONE [Suspect]
     Active Substance: PREDNISONE
     Indication: Heart transplant rejection
     Dosage: 12.5 MILLIGRAM, QD
     Route: 065
     Dates: start: 2017
  4. PREDNISONE [Suspect]
     Active Substance: PREDNISONE
     Indication: Immunosuppressant drug therapy
  5. TACROLIMUS [Suspect]
     Active Substance: TACROLIMUS
     Indication: Heart transplant rejection
     Dosage: UNK 0.15 MG/KG WITH RESIDUAL TARGET BETWEEN 8 AND 10
     Route: 065
     Dates: start: 2017
  6. TACROLIMUS [Suspect]
     Active Substance: TACROLIMUS
     Indication: Immunosuppressant drug therapy
  7. VORICONAZOLE [Suspect]
     Active Substance: VORICONAZOLE
     Indication: Disseminated aspergillosis
     Dosage: 12 MILLIGRAM/KILOGRAM, QD (6 MG/KG, BID 12 H, ON FIRST DAY)
     Route: 042
  8. VORICONAZOLE [Suspect]
     Active Substance: VORICONAZOLE
     Indication: Mediastinitis
     Dosage: 4 MILLIGRAM/KILOGRAM, QOD
     Route: 042
  9. VORICONAZOLE [Suspect]
     Active Substance: VORICONAZOLE
     Indication: Osteomyelitis fungal
     Dosage: 6 MILLIGRAM/KILOGRAM, QOD
     Route: 042
  10. VORICONAZOLE [Suspect]
     Active Substance: VORICONAZOLE
     Indication: Bronchopulmonary aspergillosis
     Dosage: 8 MILLIGRAM/KILOGRAM, BID
     Route: 042
  11. VORICONAZOLE [Suspect]
     Active Substance: VORICONAZOLE
     Indication: Aspergillus infection
     Dosage: BID (6 MG/KG/12 H THE FIRST DAY THEN 4 MG/KG/12 H FOR 7 DAYS
     Route: 042
  12. DAPTOMYCIN [Concomitant]
     Active Substance: DAPTOMYCIN
     Indication: Drug therapy
     Dosage: 11.5 MG/KG
     Route: 065
  13. ISAVUCONAZOLE [Concomitant]
     Active Substance: ISAVUCONAZOLE
     Indication: Osteomyelitis fungal
     Dosage: 200 MILLIGRAM (INITIAL LOADING DOSE 3 TIMES FOR 48 HRS)
     Route: 042
  14. ISAVUCONAZOLE [Concomitant]
     Active Substance: ISAVUCONAZOLE
     Indication: Disseminated aspergillosis
  15. ISAVUCONAZOLE [Concomitant]
     Active Substance: ISAVUCONAZOLE
     Indication: Mediastinitis
  16. PIPERACILLIN SODIUM\TAZOBACTAM SODIUM [Concomitant]
     Active Substance: PIPERACILLIN SODIUM\TAZOBACTAM SODIUM
     Indication: Drug therapy
     Dosage: 200 MILLIGRAM/KILOGRAM, TID
     Route: 065

REACTIONS (9)
  - Aspergillus infection [Recovered/Resolved]
  - Peripheral sensory neuropathy [Recovered/Resolved]
  - Disseminated aspergillosis [Recovered/Resolved]
  - Osteomyelitis fungal [Recovered/Resolved]
  - Photosensitivity reaction [Recovered/Resolved]
  - Mediastinitis [Recovered/Resolved]
  - Acute kidney injury [Recovered/Resolved]
  - Skin toxicity [Recovered/Resolved]
  - Neurotoxicity [Recovered/Resolved]
